FAERS Safety Report 21904359 (Version 1)
Quarter: 2023Q1

REPORT INFORMATION
  Report Type: Spontaneous
  Country: CA (occurrence: CA)
  Receive Date: 20230124
  Receipt Date: 20230124
  Transmission Date: 20230417
  Serious: Yes (Hospitalization)
  Sender: FDA-Public Use
  Company Number: CA-BAYER-2023A005149

PATIENT
  Age: 61 Year
  Sex: Female
  Weight: 114 kg

DRUGS (29)
  1. CIPRO [Suspect]
     Active Substance: CIPROFLOXACIN HYDROCHLORIDE
     Indication: Pyelonephritis acute
     Dosage: 1 EVERY 1 DAYS
     Route: 048
  2. PIPERACILLIN SODIUM\TAZOBACTAM SODIUM [Suspect]
     Active Substance: PIPERACILLIN SODIUM\TAZOBACTAM SODIUM
     Indication: Pyelonephritis acute
     Dosage: 1 EVERY 8 HOURS
  3. LEVAQUIN [Suspect]
     Active Substance: LEVOFLOXACIN
     Indication: Pneumonia
     Dosage: 1 EVERY 48 HOURS
     Route: 048
  4. MEROPENEM [Suspect]
     Active Substance: MEROPENEM
     Indication: Pyelonephritis acute
     Dosage: 1 EVERY 24 HOURS
     Route: 042
  5. ALFACALCIDOL [Concomitant]
     Active Substance: ALFACALCIDOL
  6. ASPIRIN [Concomitant]
     Active Substance: ASPIRIN
  7. ACETAMINOPHEN [Concomitant]
     Active Substance: ACETAMINOPHEN
  8. CITALOPRAM [Concomitant]
     Active Substance: CITALOPRAM HYDROBROMIDE
  9. CALCIUM CARBONATE [Concomitant]
     Active Substance: CALCIUM CARBONATE
  10. CARBAMAZEPINE [Concomitant]
     Active Substance: CARBAMAZEPINE
  11. ARANESP [Concomitant]
     Active Substance: DARBEPOETIN ALFA
  12. HALOPERIDOL [Concomitant]
     Active Substance: HALOPERIDOL
  13. MOMETASONE FUROATE [Concomitant]
     Active Substance: MOMETASONE FUROATE
  14. QUETIAPINE [Concomitant]
     Active Substance: QUETIAPINE
  15. SPIRIVA [Concomitant]
     Active Substance: TIOTROPIUM BROMIDE MONOHYDRATE
  16. VITAMIN D NOS [Concomitant]
     Active Substance: VITAMIN D NOS
  17. PREDNISONE [Concomitant]
     Active Substance: PREDNISONE
  18. ENOXAPARIN [Concomitant]
     Active Substance: ENOXAPARIN
  19. FUROSEMIDE [Concomitant]
     Active Substance: FUROSEMIDE
  20. DEXAMETHASONE [Concomitant]
     Active Substance: DEXAMETHASONE
  21. CICLOPIROX OLAMINE [Concomitant]
     Active Substance: CICLOPIROX OLAMINE
  22. DIMENHYDRINATE [Concomitant]
     Active Substance: DIMENHYDRINATE
  23. FLUTICASONE PROPIONATE\SALMETEROL XINAFOATE [Concomitant]
     Active Substance: FLUTICASONE PROPIONATE\SALMETEROL XINAFOATE
  24. RISPERIDONE [Concomitant]
     Active Substance: RISPERIDONE
  25. CLONAZEPAM [Concomitant]
     Active Substance: CLONAZEPAM
  26. DEXILANT [Concomitant]
     Active Substance: DEXLANSOPRAZOLE
  27. RENVELA [Concomitant]
     Active Substance: SEVELAMER CARBONATE
  28. HYDROCORTISONE [Concomitant]
     Active Substance: HYDROCORTISONE
  29. BISOPROLOL [Concomitant]
     Active Substance: BISOPROLOL

REACTIONS (2)
  - COVID-19 [Recovered/Resolved]
  - Clostridium difficile colitis [Recovered/Resolved]
